FAERS Safety Report 9717235 (Version 1)
Quarter: 2013Q4

REPORT INFORMATION
  Report Type: Spontaneous
  Country: GB (occurrence: GB)
  Receive Date: 20131127
  Receipt Date: 20131127
  Transmission Date: 20140711
  Serious: Yes (Other)
  Sender: FDA-Public Use
  Company Number: GB-TEVA-445722ISR

PATIENT
  Age: 83 Year
  Sex: Female

DRUGS (2)
  1. PREDNISOLONE [Suspect]
     Indication: UVEITIS
     Dosage: 10 MG, DAILY
     Route: 048
     Dates: start: 20121112, end: 201301
  2. MAXIDEX [Suspect]
     Indication: UVEITIS
     Route: 047

REACTIONS (5)
  - Depressed mood [Not Recovered/Not Resolved]
  - Mental impairment [Not Recovered/Not Resolved]
  - Abulia [Not Recovered/Not Resolved]
  - Confusional state [Not Recovered/Not Resolved]
  - Memory impairment [Not Recovered/Not Resolved]
